FAERS Safety Report 9311906 (Version 3)
Quarter: 2016Q1

REPORT INFORMATION
  Report Type: Report from Study
  Country: US (occurrence: US)
  Receive Date: 20130528
  Receipt Date: 20160205
  Transmission Date: 20160526
  Serious: Yes (Hospitalization, Congenital Anomaly, Other)
  Sender: FDA-Public Use
  Company Number: PHHY2013US052770

PATIENT
  Sex: Male

DRUGS (2)
  1. GILENYA [Suspect]
     Active Substance: FINGOLIMOD HYDROCHLORIDE
     Indication: MULTIPLE SCLEROSIS
     Dosage: MATERNAL DOSE: 0.5 MG, QD
     Route: 064
  2. PROCARDIA [Suspect]
     Active Substance: NIFEDIPINE
     Route: 064

REACTIONS (5)
  - Premature baby [Unknown]
  - Foetal exposure timing unspecified [Unknown]
  - Liver disorder [Unknown]
  - Multi-organ disorder [Unknown]
  - Kidney malformation [Unknown]
